FAERS Safety Report 6300267-9 (Version None)
Quarter: 2009Q3

REPORT INFORMATION
  Report Type: 
  Country: None (occurrence: None)
  Receive Date: 20090806
  Receipt Date: 20090730
  Transmission Date: 20100115
  Serious: Yes (Hospitalization, Other)
  Sender: FDA-Public Use
  Company Number: US-AMGEN-QUU358197

PATIENT
  Sex: Female

DRUGS (2)
  1. ENBREL [Suspect]
     Indication: PSORIATIC ARTHROPATHY
     Route: 058
     Dates: start: 20070403
  2. ENBREL [Suspect]
     Indication: PSORIASIS

REACTIONS (8)
  - ANKLE FRACTURE [None]
  - BALANCE DISORDER [None]
  - DEPRESSION [None]
  - FALL [None]
  - OPEN FRACTURE [None]
  - OSTEOARTHRITIS [None]
  - PSORIASIS [None]
  - WEIGHT DECREASED [None]
